FAERS Safety Report 16171462 (Version 1)
Quarter: 2019Q2

REPORT INFORMATION
  Report Type: Report from Study
  Country: US (occurrence: US)
  Receive Date: 20190408
  Receipt Date: 20190408
  Transmission Date: 20190711
  Serious: No
  Sender: FDA-Public Use
  Company Number: PHEH2019US015195

PATIENT
  Age: 36 Year
  Sex: Male

DRUGS (1)
  1. GILENYA [Suspect]
     Active Substance: FINGOLIMOD HYDROCHLORIDE
     Indication: PRODUCT USED FOR UNKNOWN INDICATION
     Dosage: 0.5 MG, QD
     Route: 065

REACTIONS (4)
  - Pain in extremity [Recovering/Resolving]
  - Abdominal pain upper [Unknown]
  - Arthralgia [Recovering/Resolving]
  - Gastrointestinal disorder [Unknown]

NARRATIVE: CASE EVENT DATE: 20190315
